FAERS Safety Report 6058749-3 (Version None)
Quarter: 2009Q1

REPORT INFORMATION
  Report Type: 
  Country: None (occurrence: None)
  Receive Date: 20090130
  Receipt Date: 20090120
  Transmission Date: 20090719
  Serious: Yes (Hospitalization)
  Sender: FDA-Public Use
  Company Number: FR-PFIZER INC-2009159123

PATIENT

DRUGS (4)
  1. ZITHROMAX [Suspect]
     Route: 048
     Dates: start: 20081109, end: 20081109
  2. TRUVADA [Suspect]
     Route: 048
     Dates: start: 20081109
  3. KALETRA [Suspect]
     Route: 048
     Dates: start: 20081109
  4. NORLEVO [Suspect]
     Route: 048
     Dates: start: 20081109

REACTIONS (7)
  - ABDOMINAL PAIN [None]
  - ANXIETY [None]
  - DIARRHOEA [None]
  - INCORRECT DOSE ADMINISTERED [None]
  - LIVER DISORDER [None]
  - RENAL DISORDER [None]
  - SCIATICA [None]
